FAERS Safety Report 10612231 (Version 1)
Quarter: 2014Q4

REPORT INFORMATION
  Report Type: Report from Study
  Country: DE (occurrence: DE)
  Receive Date: 20141127
  Receipt Date: 20141127
  Transmission Date: 20150529
  Serious: Yes (Other)
  Sender: FDA-Public Use
  Company Number: DE-MERCK-1411DEU011094

PATIENT

DRUGS (3)
  1. REBETOL [Suspect]
     Active Substance: RIBAVIRIN
     Indication: HEPATITIS C
     Dosage: 1000-1200 MG/DAY OR 800-1400 MG/DAY
     Route: 048
  2. PEGINTERFERON ALFA-2B [Suspect]
     Active Substance: PEGINTERFERON ALFA-2B
     Indication: HEPATITIS C
     Dosage: 0.5 ML FROM PREFILL PEN WITH 50MCG, 80 MCG, 100 MCG, 120MCG, OR 150 MCG AT 1.5 MCG/KG
     Route: 058
  3. SIMEPREVIR [Suspect]
     Active Substance: SIMEPREVIR
     Indication: HEPATITIS C
     Dosage: 150 MG, ONCE DAILY
     Route: 048

REACTIONS (1)
  - Adverse event [Unknown]
